FAERS Safety Report 11274052 (Version 1)
Quarter: 2015Q3

REPORT INFORMATION
  Report Type: Report from Study
  Country: DE (occurrence: DE)
  Receive Date: 20150715
  Receipt Date: 20150715
  Transmission Date: 20151125
  Serious: Yes (Hospitalization)
  Sender: FDA-Public Use
  Company Number: DE-ABBVIE-15K-062-1425059-00

PATIENT
  Age: 66 Year
  Sex: Female

DRUGS (3)
  1. BISOPROLOL [Concomitant]
     Active Substance: BISOPROLOL
     Indication: PRODUCT USED FOR UNKNOWN INDICATION
  2. HUMIRA [Suspect]
     Active Substance: ADALIMUMAB
     Indication: ANKYLOSING SPONDYLITIS
     Route: 058
     Dates: start: 20070725
  3. AMITRIPTYLINE [Concomitant]
     Active Substance: AMITRIPTYLINE
     Indication: PRODUCT USED FOR UNKNOWN INDICATION

REACTIONS (1)
  - Colitis microscopic [Recovered/Resolved]

NARRATIVE: CASE EVENT DATE: 20150330
